FAERS Safety Report 13661205 (Version 3)
Quarter: 2017Q3

REPORT INFORMATION
  Report Type: Spontaneous
  Country: US (occurrence: US)
  Receive Date: 20170616
  Receipt Date: 20170803
  Transmission Date: 20171127
  Serious: Yes (Other)
  Sender: FDA-Public Use
  Company Number: US-PFIZER INC-2017258485

PATIENT
  Age: 70 Year
  Sex: Female
  Weight: 72.57 kg

DRUGS (5)
  1. PANTOPRAZOLE [Suspect]
     Active Substance: PANTOPRAZOLE
     Indication: HIATUS HERNIA
     Dosage: 40MG TABLET, 1 BY MOUTH 1/2 HOUR BEFORE MEALS
     Route: 048
     Dates: end: 2017
  2. PANTOPRAZOLE [Suspect]
     Active Substance: PANTOPRAZOLE
     Indication: OESOPHAGEAL DISORDER
  3. FOSAMAX [Concomitant]
     Active Substance: ALENDRONATE SODIUM
     Indication: OSTEOPOROSIS
     Dosage: 70 MG, SINGLE
     Dates: start: 201705
  4. FOSAMAX [Concomitant]
     Active Substance: ALENDRONATE SODIUM
     Dosage: 70 UNK, WEEKLY
  5. RANITIDINE HCL [Concomitant]
     Active Substance: RANITIDINE HYDROCHLORIDE
     Dosage: 150 MG, 2X/DAY
     Dates: start: 20170530

REACTIONS (5)
  - Malabsorption [Unknown]
  - Vitamin D deficiency [Unknown]
  - Incorrect drug administration duration [Unknown]
  - Pain in extremity [Unknown]
  - Lower limb fracture [Unknown]

NARRATIVE: CASE EVENT DATE: 201703
